FAERS Safety Report 16694581 (Version 1)
Quarter: 2019Q3

REPORT INFORMATION
  Report Type: Report from Study
  Country: DE (occurrence: DE)
  Receive Date: 20190812
  Receipt Date: 20190812
  Transmission Date: 20191004
  Serious: Yes (Hospitalization, Other)
  Sender: FDA-Public Use
  Company Number: DE-MYLANLABS-2019M1074604

PATIENT
  Age: 59 Year
  Sex: Female
  Weight: 68 kg

DRUGS (20)
  1. LOPERAMID [Concomitant]
     Active Substance: LOPERAMIDE
     Indication: DIARRHOEA
     Dosage: 2 MILLIGRAM
     Route: 048
     Dates: start: 20140211, end: 20140304
  2. TRASTUZUMAB. [Suspect]
     Active Substance: TRASTUZUMAB
     Dosage: 408 MILLIGRAM, Q3W
     Route: 042
     Dates: start: 20140211, end: 20150225
  3. PERTUZUMAB. [Suspect]
     Active Substance: PERTUZUMAB
     Dosage: 420 MILLIGRAM, Q3W
     Route: 042
     Dates: start: 20140617, end: 20140617
  4. PERTUZUMAB. [Suspect]
     Active Substance: PERTUZUMAB
     Dosage: 420 MILLIGRAM, Q3W
     Route: 042
     Dates: start: 20150326
  5. TRASTUZUMAB. [Suspect]
     Active Substance: TRASTUZUMAB
     Indication: HER-2 POSITIVE BREAST CANCER
     Dosage: 544 MILLIGRAM, Q3W
     Route: 042
     Dates: start: 20140121, end: 20140121
  6. TRASTUZUMAB. [Suspect]
     Active Substance: TRASTUZUMAB
     Dosage: 372 MILLIGRAM, Q3W
     Route: 042
     Dates: start: 20150318, end: 20150530
  7. SPASMEX                            /00376202/ [Concomitant]
     Active Substance: TROSPIUM CHLORIDE
     Indication: HYPOTONIA
     Dosage: 30 MILLIGRAM, QD
     Route: 048
     Dates: start: 20150226, end: 20150530
  8. FLUCONAZOL [Concomitant]
     Active Substance: FLUCONAZOLE
     Indication: FUNGAL INFECTION
     Dosage: 200 MILLIGRAM, QD
     Route: 042
     Dates: start: 201505, end: 20150530
  9. METROGEL [Concomitant]
     Active Substance: METRONIDAZOLE
     Indication: URTICARIA
     Dosage: UNK
     Route: 065
     Dates: start: 20150113, end: 20150530
  10. EXEMESTANE. [Concomitant]
     Active Substance: EXEMESTANE
     Dosage: 25 MILLIGRAM
     Route: 048
     Dates: start: 201110, end: 20150530
  11. DOCETAXEL. [Concomitant]
     Active Substance: DOCETAXEL
     Indication: BREAST CANCER
     Dosage: 125.25 MILLIGRAM, Q3W
     Route: 042
     Dates: start: 20140121, end: 20150530
  12. AMPHO MORONAL [Concomitant]
     Active Substance: AMPHOTERICIN B
     Indication: STOMATITIS
     Route: 048
     Dates: start: 20140211, end: 20150101
  13. PERTUZUMAB. [Suspect]
     Active Substance: PERTUZUMAB
     Dosage: 840 MILLIGRAM, Q3W
     Route: 042
     Dates: start: 20140121, end: 20150318
  14. GRANOCYTE [Concomitant]
     Active Substance: LENOGRASTIM
     Indication: NEUTROPENIA
     Dosage: 34 INTERNATIONAL UNIT, QD
     Route: 058
     Dates: start: 20140313, end: 20140313
  15. TRASTUZUMAB. [Suspect]
     Active Substance: TRASTUZUMAB
     Dosage: 408 MILLIGRAM, Q3W
     Route: 042
     Dates: start: 20140617, end: 20140617
  16. PERTUZUMAB. [Suspect]
     Active Substance: PERTUZUMAB
     Indication: HER-2 POSITIVE BREAST CANCER
     Dosage: DAILY DOSE: 840 MG MILLGRAM(S) EVERY 3 WEEKS
     Route: 042
     Dates: start: 20140121, end: 20150318
  17. PERTUZUMAB. [Suspect]
     Active Substance: PERTUZUMAB
     Dosage: 420 MG, Q3W (MAINTENANCE DOSE)
     Route: 042
     Dates: start: 20140211
  18. TRASTUZUMAB. [Suspect]
     Active Substance: TRASTUZUMAB
     Dosage: UNK, Q3W
     Route: 042
     Dates: start: 20150318
  19. NEULASTA [Concomitant]
     Active Substance: PEGFILGRASTIM
     Indication: NEUTROPENIA
     Dosage: 6 MILLIGRAM
     Route: 058
     Dates: start: 20140326, end: 20140507
  20. EUTHYROX [Concomitant]
     Active Substance: LEVOTHYROXINE SODIUM
     Indication: THYROID DISORDER
     Dosage: 50 MICROGRAM, QD
     Route: 048
     Dates: end: 20150530

REACTIONS (35)
  - Urinary incontinence [Not Recovered/Not Resolved]
  - Cough [Recovered/Resolved]
  - Pruritus [Recovered/Resolved]
  - Pneumonia aspiration [Recovered/Resolved]
  - Laryngeal oedema [Not Recovered/Not Resolved]
  - Poikiloderma [Not Recovered/Not Resolved]
  - Hypokinesia [Recovered/Resolved]
  - Myopathy [Not Recovered/Not Resolved]
  - Dyspnoea [Not Recovered/Not Resolved]
  - Aspiration [Not Recovered/Not Resolved]
  - Neuropathy peripheral [Recovered/Resolved]
  - Stridor [Not Recovered/Not Resolved]
  - Urinary tract infection [Not Recovered/Not Resolved]
  - Bone pain [Recovered/Resolved]
  - Eyelid ptosis [Not Recovered/Not Resolved]
  - Urticaria [Not Recovered/Not Resolved]
  - Stomatitis [Recovered/Resolved]
  - Myositis [Not Recovered/Not Resolved]
  - Gait disturbance [Not Recovered/Not Resolved]
  - Condition aggravated [Not Recovered/Not Resolved]
  - Fungal infection [Not Recovered/Not Resolved]
  - Pain [Not Recovered/Not Resolved]
  - Swelling of eyelid [Not Recovered/Not Resolved]
  - Abdominal pain upper [Recovered/Resolved]
  - Face oedema [Not Recovered/Not Resolved]
  - General physical health deterioration [Not Recovered/Not Resolved]
  - Vocal cord paralysis [Not Recovered/Not Resolved]
  - Pleural effusion [Recovered/Resolved]
  - Dysphonia [Recovered/Resolved]
  - Epistaxis [Recovered/Resolved]
  - Muscular weakness [Recovered/Resolved]
  - Dysphagia [Not Recovered/Not Resolved]
  - Weight decreased [Not Recovered/Not Resolved]
  - Painful respiration [Recovered/Resolved]
  - Nail disorder [Recovered/Resolved]

NARRATIVE: CASE EVENT DATE: 20140121
